FAERS Safety Report 4311329-X (Version None)
Quarter: 2004Q1

REPORT INFORMATION
  Report Type: 
  Country: None (occurrence: None)
  Receive Date: 20040302
  Receipt Date: 20030131
  Transmission Date: 20041129
  Serious: Yes (Life-Threatening, Hospitalization)
  Sender: FDA-Public Use
  Company Number: BDI-004916

PATIENT
  Age: 59 Year
  Sex: Female
  Weight: 86 kg

DRUGS (12)
  1. IOPAMIDOL [Suspect]
     Indication: COMPUTERISED TOMOGRAM
     Dosage: SY
     Dates: start: 20010408, end: 20010408
  2. IOPAMIDOL [Suspect]
     Indication: METASTASES TO LUNG
     Dosage: SY
     Dates: start: 20010408, end: 20010408
  3. IOPAMIDOL [Suspect]
     Indication: UROGRAPHY
     Dosage: SY
     Dates: start: 20010408, end: 20010408
  4. OXYGEN [Concomitant]
  5. COMBIVENT [Concomitant]
  6. LORTAB [Concomitant]
  7. PROCARDIA [Concomitant]
  8. PAXIL [Concomitant]
  9. DEMADEX [Concomitant]
  10. ZESTRIL [Concomitant]
  11. NAVELBINE [Concomitant]
  12. FEMARA [Concomitant]

REACTIONS (2)
  - ANAPHYLACTOID REACTION [None]
  - HYPERKINESIA [None]
